FAERS Safety Report 23528957 (Version 2)
Quarter: 2024Q1

REPORT INFORMATION
  Report Type: Report from Study
  Country: CA (occurrence: CA)
  Receive Date: 20240215
  Receipt Date: 20240229
  Transmission Date: 20240410
  Serious: Yes (Hospitalization, Other)
  Sender: FDA-Public Use
  Company Number: CA-JNJFOC-20230324339

PATIENT
  Age: 29 Year
  Sex: Male

DRUGS (3)
  1. REMICADE [Suspect]
     Active Substance: INFLIXIMAB
     Indication: Crohn^s disease
     Route: 041
  2. REMICADE [Suspect]
     Active Substance: INFLIXIMAB
     Route: 041
  3. REMICADE [Suspect]
     Active Substance: INFLIXIMAB
     Route: 041

REACTIONS (11)
  - Pulmonary thrombosis [Recovering/Resolving]
  - Renal artery occlusion [Recovering/Resolving]
  - IgA nephropathy [Recovering/Resolving]
  - Thrombosis [Recovered/Resolved]
  - Haematological malignancy [Recovered/Resolved]
  - Cutaneous vasculitis [Recovered/Resolved]
  - Nasopharyngitis [Recovered/Resolved]
  - Proteinuria [Recovered/Resolved]
  - Muscle rigidity [Recovered/Resolved]
  - Gastrointestinal inflammation [Unknown]
  - Off label use [Unknown]

NARRATIVE: CASE EVENT DATE: 20230217
